FAERS Safety Report 16438802 (Version 7)
Quarter: 2025Q3

REPORT INFORMATION
  Report Type: Spontaneous
  Country: EU (occurrence: EU)
  Receive Date: 20190617
  Receipt Date: 20250806
  Transmission Date: 20251020
  Serious: Yes (Disabling, Other)
  Sender: PFIZER
  Company Number: EU-SA-2019SA148928

PATIENT
  Age: 50 Year
  Sex: Male
  Weight: 76 kg

DRUGS (8)
  1. AMIODARONE HYDROCHLORIDE [Suspect]
     Active Substance: AMIODARONE HYDROCHLORIDE
     Indication: Atrial fibrillation
     Dosage: 200 MG/DAY PER OS
     Route: 048
     Dates: start: 2017
  2. CYCLOSPORINE [Suspect]
     Active Substance: CYCLOSPORINE
     Indication: Hepatocellular carcinoma
     Dosage: 50 MG/DAY PER OS (STARTED ABOUT IN 2004; FOR MANY YEARS AT HIGHER DOSAGES)
     Route: 048
     Dates: start: 2004
  3. CYCLOSPORINE [Suspect]
     Active Substance: CYCLOSPORINE
     Route: 048
  4. ASPIRIN [Concomitant]
     Active Substance: ASPIRIN
  5. ALLOPURINOL [Concomitant]
     Active Substance: ALLOPURINOL
  6. MYCOPHENOLIC ACID [Concomitant]
     Active Substance: MYCOPHENOLIC ACID
  7. VALSARTAN AND HYDROCHLOROTHIAZIDE [Concomitant]
     Active Substance: HYDROCHLOROTHIAZIDE\VALSARTAN
  8. DOXAZOSIN [Concomitant]
     Active Substance: DOXAZOSIN MESYLATE

REACTIONS (4)
  - Toxicity to various agents [Unknown]
  - Myopathy toxic [Unknown]
  - Myopathy [Unknown]
  - Walking disability [Unknown]
